FAERS Safety Report 4759457-9 (Version None)
Quarter: 2005Q3

REPORT INFORMATION
  Report Type: 
  Country: None (occurrence: None)
  Receive Date: 20050831
  Receipt Date: 20050818
  Transmission Date: 20060218
  Serious: Yes (Other)
  Sender: FDA-Public Use
  Company Number: 2005BI014533

PATIENT
  Age: 31 Year
  Sex: Female

DRUGS (1)
  1. AVONEX [Suspect]
     Indication: MULTIPLE SCLEROSIS
     Dosage: 30 UG; QW; IM
     Route: 030
     Dates: start: 20050801, end: 20050801

REACTIONS (6)
  - CONVULSION [None]
  - HYPERTENSION [None]
  - MUSCLE SPASMS [None]
  - PYREXIA [None]
  - SPEECH DISORDER [None]
  - VISUAL DISTURBANCE [None]
